FAERS Safety Report 5889661-8 (Version None)
Quarter: 2008Q3

REPORT INFORMATION
  Report Type: 
  Country: None (occurrence: None)
  Receive Date: 20080919
  Receipt Date: 20050325
  Transmission Date: 20090109
  Serious: Yes (Hospitalization, Other)
  Sender: FDA-Public Use
  Company Number: IT-ROCHE-572219

PATIENT
  Sex: Female
  Weight: 63 kg

DRUGS (4)
  1. PEGASYS [Suspect]
     Route: 065
     Dates: start: 20040427
  2. PEGASYS [Suspect]
     Dosage: DOSE REDUCED.
     Route: 065
     Dates: start: 20041008
  3. REBETOL [Suspect]
     Route: 065
     Dates: start: 20040427
  4. REBETOL [Suspect]
     Dosage: DOSE REDUCED.
     Route: 065
     Dates: start: 20041008

REACTIONS (2)
  - HEAD INJURY [None]
  - SYNCOPE [None]
